FAERS Safety Report 16118717 (Version 1)
Quarter: 2019Q1

REPORT INFORMATION
  Report Type: Spontaneous
  Country: US (occurrence: US)
  Receive Date: 20190326
  Receipt Date: 20190326
  Transmission Date: 20190418
  Serious: Yes (Death)
  Sender: FDA-Public Use
  Company Number: US-ADAMAS PHARMA, LLC-2019ADA00558

PATIENT
  Sex: Male

DRUGS (1)
  1. GOCOVRI [Suspect]
     Active Substance: AMANTADINE

REACTIONS (1)
  - Cardiac arrest [Fatal]
